FAERS Safety Report 4688444-4 (Version None)
Quarter: 2005Q2

REPORT INFORMATION
  Report Type: 
  Country: None (occurrence: None)
  Receive Date: 20050609
  Receipt Date: 20050602
  Transmission Date: 20051028
  Serious: Yes (Hospitalization)
  Sender: FDA-Public Use
  Company Number: 200213027GDS

PATIENT
  Age: 38 Year
  Sex: Female
  Weight: 80 kg

DRUGS (9)
  1. MOXIFLOXACIN [Suspect]
     Indication: PNEUMONIA
     Dosage: 400 MG, QD, ORAL
     Route: 048
     Dates: start: 20020911, end: 20020914
  2. TEOBAG [Concomitant]
  3. COMBIVENT [Concomitant]
  4. VENTOLIN [Concomitant]
  5. APROL [Concomitant]
  6. NOVALGIN/SWE/ [Concomitant]
  7. SETAMOL [Concomitant]
  8. ASIST [Concomitant]
  9. LASIX [Concomitant]

REACTIONS (2)
  - DRUG INEFFECTIVE [None]
  - EMPYEMA [None]
